FAERS Safety Report 5956466-9 (Version None)
Quarter: 2008Q4

REPORT INFORMATION
  Report Type: 
  Country: None (occurrence: None)
  Receive Date: 20081114
  Receipt Date: 20081114
  Transmission Date: 20090506
  Serious: Yes (Life-Threatening, Other)
  Sender: FDA-Public Use
  Company Number: None

PATIENT
  Age: 51 Year
  Sex: Male
  Weight: 79.3795 kg

DRUGS (1)
  1. MORPHINE SULFATE IR 15MG TETH 15MG CVS PHARMACY - ETHEX CORP [Suspect]
     Indication: BACK PAIN
     Dosage: 15MG TWICE DAILY PO
     Route: 048
     Dates: start: 20070101, end: 20081112

REACTIONS (7)
  - AFFECTIVE DISORDER [None]
  - DISTURBANCE IN ATTENTION [None]
  - DYSPNOEA [None]
  - JUDGEMENT IMPAIRED [None]
  - PAIN [None]
  - PRODUCT QUALITY ISSUE [None]
  - UNEVALUABLE EVENT [None]
